FAERS Safety Report 14794771 (Version 3)
Quarter: 2018Q2

REPORT INFORMATION
  Report Type: Spontaneous
  Country: RO (occurrence: RO)
  Receive Date: 20180423
  Receipt Date: 20180629
  Transmission Date: 20180711
  Serious: Yes (Death, Hospitalization, Other)
  Sender: FDA-Public Use
  Company Number: RO-ASTELLAS-2018US018616

PATIENT
  Age: 66 Year
  Sex: Male

DRUGS (1)
  1. TACROLIMUS. [Suspect]
     Active Substance: TACROLIMUS
     Indication: LIVER TRANSPLANT
     Dosage: ADJUSTED TO OBTAIN SERUM LEVEL 5-7
     Route: 048
     Dates: start: 20150103

REACTIONS (4)
  - Metastases to liver [Fatal]
  - Pancreatic carcinoma [Fatal]
  - Cholestasis [Not Recovered/Not Resolved]
  - Hepatitis C [Recovered/Resolved]

NARRATIVE: CASE EVENT DATE: 20150505
